FAERS Safety Report 5115060-2 (Version None)
Quarter: 2006Q3

REPORT INFORMATION
  Report Type: 
  Country: None (occurrence: None)
  Receive Date: 20060926
  Receipt Date: 20060912
  Transmission Date: 20061208
  Serious: Yes (Hospitalization)
  Sender: FDA-Public Use
  Company Number: CH-JNJFOC-20060904685

PATIENT
  Age: 66 Year
  Sex: Male

DRUGS (8)
  1. TRAMADOL HCL [Suspect]
  2. TRAMADOL HCL [Suspect]
     Indication: BACK PAIN
  3. PARACETAMOL [Concomitant]
  4. PARACETAMOL [Concomitant]
  5. VITAMIN B COMPLEX CAP [Concomitant]
  6. ALPRAZOLAM [Concomitant]
  7. MIRTAZAPINE [Concomitant]
  8. AMISULPRIDE [Concomitant]

REACTIONS (3)
  - DELIRIUM [None]
  - MEMORY IMPAIRMENT [None]
  - PARKINSONIAN GAIT [None]
